FAERS Safety Report 7392720-4 (Version None)
Quarter: 2011Q1

REPORT INFORMATION
  Report Type: 
  Country: None (occurrence: None)
  Receive Date: 20110330
  Receipt Date: 20110330
  Transmission Date: 20110831
  Serious: Yes (Hospitalization)
  Sender: FDA-Public Use
  Company Number: None

PATIENT
  Age: 35 Year
  Sex: Female
  Weight: 53.0709 kg

DRUGS (1)
  1. LOESTRIN 24 FE [Suspect]
     Indication: CONTRACEPTION
     Dosage: 24  ONE A DAY
     Dates: start: 20110220, end: 20110318

REACTIONS (4)
  - ABDOMINAL PAIN UPPER [None]
  - MUSCLE SPASMS [None]
  - DIARRHOEA HAEMORRHAGIC [None]
  - HAEMORRHAGE [None]
